FAERS Safety Report 21291769 (Version 6)
Quarter: 2023Q2

REPORT INFORMATION
  Report Type: Report from Study
  Country: US (occurrence: US)
  Receive Date: 20220903
  Receipt Date: 20230424
  Transmission Date: 20230722
  Serious: Yes (Other)
  Sender: FDA-Public Use
  Company Number: US-ABBVIE-22K-163-4427093-00

PATIENT
  Sex: Female
  Weight: 95.254 kg

DRUGS (9)
  1. RINVOQ [Suspect]
     Active Substance: UPADACITINIB
     Indication: Rheumatoid arthritis
     Dosage: FORM STRENGTH: 15 MILLIGRAM
     Route: 048
     Dates: start: 20230102, end: 20230223
  2. RINVOQ [Suspect]
     Active Substance: UPADACITINIB
     Indication: Rheumatoid arthritis
     Dosage: 15 MILLIGRAM THERAPY START DATE 2019
     Route: 048
     Dates: end: 20221017
  3. RINVOQ [Suspect]
     Active Substance: UPADACITINIB
     Indication: Rheumatoid arthritis
     Dosage: 15 MILLIGRAM
     Route: 048
     Dates: start: 20230309
  4. VITAMIN D3 [Concomitant]
     Active Substance: CHOLECALCIFEROL
     Indication: Product used for unknown indication
  5. MODERNA COVID-19 VACCINE [Concomitant]
     Active Substance: ELASOMERAN
     Indication: COVID-19 immunisation
     Dosage: TIME INTERVAL: 1 TOTAL: 1ST DOSE 1 IN ONCE
     Route: 030
  6. MODERNA COVID-19 VACCINE [Concomitant]
     Active Substance: ELASOMERAN
     Indication: COVID-19 immunisation
     Dosage: TIME INTERVAL: 1 TOTAL: 2ND DOSE 1 IN ONCE
     Route: 030
  7. MODERNA COVID-19 VACCINE [Concomitant]
     Active Substance: ELASOMERAN
     Indication: COVID-19 immunisation
     Dosage: TIME INTERVAL: 1 TOTAL: BOOSTER DOSE 1 IN ONCE
     Route: 030
  8. VITAMIN B- COMPLEX [Concomitant]
     Indication: Product used for unknown indication
  9. PROBIOTICS NOS [Concomitant]
     Active Substance: PROBIOTICS NOS
     Indication: Product used for unknown indication

REACTIONS (21)
  - Back pain [Not Recovered/Not Resolved]
  - Spondylolysis [Recovering/Resolving]
  - Impaired healing [Unknown]
  - Spinal stenosis [Recovering/Resolving]
  - Rheumatoid arthritis [Not Recovered/Not Resolved]
  - Cough [Not Recovered/Not Resolved]
  - Spinal fusion surgery [Unknown]
  - Intervertebral disc protrusion [Recovering/Resolving]
  - Spinal operation [Not Recovered/Not Resolved]
  - Impaired healing [Recovered/Resolved]
  - Pain in extremity [Unknown]
  - Nasopharyngitis [Not Recovered/Not Resolved]
  - Pain [Unknown]
  - Intervertebral disc degeneration [Not Recovered/Not Resolved]
  - Peripheral swelling [Unknown]
  - Night sweats [Not Recovered/Not Resolved]
  - Wound [Unknown]
  - Fatigue [Unknown]
  - Bowel movement irregularity [Unknown]
  - Meniscus injury [Recovering/Resolving]
  - Arthralgia [Unknown]

NARRATIVE: CASE EVENT DATE: 20190101
